FAERS Safety Report 15800834 (Version 1)
Quarter: 2019Q1

REPORT INFORMATION
  Report Type: Spontaneous
  Country: CN (occurrence: CN)
  Receive Date: 20190109
  Receipt Date: 20190109
  Transmission Date: 20190417
  Serious: Yes (Hospitalization)
  Sender: FDA-Public Use
  Company Number: CN-ROCHE-2239347

PATIENT
  Age: 62 Year
  Sex: Male

DRUGS (18)
  1. OXALIPLATIN. [Concomitant]
     Active Substance: OXALIPLATIN
     Route: 065
     Dates: start: 20150925, end: 20150925
  2. OXALIPLATIN. [Concomitant]
     Active Substance: OXALIPLATIN
     Route: 065
     Dates: start: 20150925, end: 20150925
  3. FLUOROURACIL. [Concomitant]
     Active Substance: FLUOROURACIL
     Route: 048
     Dates: start: 20140523
  4. IRINOTECAN [Concomitant]
     Active Substance: IRINOTECAN
     Route: 065
     Dates: start: 20141114
  5. FLUOROURACIL. [Concomitant]
     Active Substance: FLUOROURACIL
     Route: 048
     Dates: start: 201504, end: 201505
  6. FLUOROURACIL. [Concomitant]
     Active Substance: FLUOROURACIL
     Route: 065
     Dates: start: 20150925, end: 20150925
  7. EPIRUBICIN [Concomitant]
     Active Substance: EPIRUBICIN
     Indication: COLON CANCER
     Route: 065
     Dates: start: 20150925, end: 20150925
  8. NIFEDIPINE. [Concomitant]
     Active Substance: NIFEDIPINE
     Indication: HYPERTENSION
  9. ISOSORBIDE DINITRATE. [Concomitant]
     Active Substance: ISOSORBIDE DINITRATE
     Indication: ATRIAL FIBRILLATION
  10. CAPECITABINE. [Suspect]
     Active Substance: CAPECITABINE
     Indication: COLON CANCER
     Route: 065
     Dates: start: 20110628, end: 20110929
  11. OXALIPLATIN. [Concomitant]
     Active Substance: OXALIPLATIN
     Indication: COLON CANCER
     Route: 065
     Dates: start: 20110628, end: 20110929
  12. FLUOROURACIL. [Concomitant]
     Active Substance: FLUOROURACIL
     Route: 065
     Dates: start: 20150925, end: 20150925
  13. EPIRUBICIN [Concomitant]
     Active Substance: EPIRUBICIN
     Route: 065
     Dates: start: 20150925, end: 20150925
  14. PROPAFENONE. [Concomitant]
     Active Substance: PROPAFENONE
     Indication: ATRIAL FIBRILLATION
  15. FLUOROURACIL. [Concomitant]
     Active Substance: FLUOROURACIL
     Indication: COLON CANCER
     Route: 048
     Dates: start: 201201, end: 201205
  16. FLUOROURACIL. [Concomitant]
     Active Substance: FLUOROURACIL
     Route: 048
     Dates: start: 20130412, end: 20130705
  17. FLUOROURACIL. [Concomitant]
     Active Substance: FLUOROURACIL
     Route: 065
     Dates: start: 20141114
  18. CALCIUM FOLINATE [Concomitant]
     Active Substance: LEUCOVORIN CALCIUM
     Indication: COLON CANCER
     Route: 065
     Dates: start: 20141114

REACTIONS (5)
  - Face oedema [Unknown]
  - Gastrointestinal disorder [Unknown]
  - Fatigue [Unknown]
  - Diarrhoea [Unknown]
  - Pericardial effusion [Unknown]

NARRATIVE: CASE EVENT DATE: 201512
